FAERS Safety Report 23182503 (Version 1)
Quarter: 2023Q4

REPORT INFORMATION
  Report Type: Spontaneous
  Country: US (occurrence: None)
  Receive Date: 20231114
  Receipt Date: 20231114
  Transmission Date: 20240110
  Serious: Yes (Other)
  Sender: FDA-Public Use
  Company Number: None

PATIENT
  Age: 22 Year
  Sex: Female

DRUGS (1)
  1. SUBOXONE [Suspect]
     Active Substance: BUPRENORPHINE HYDROCHLORIDE\NALOXONE HYDROCHLORIDE
     Indication: Drug use disorder
     Dosage: OTHER QUANTITY : 4/1 MG ;?FREQUENCY : TWICE A DAY;?
     Route: 060
     Dates: start: 20230120

REACTIONS (3)
  - Rash maculo-papular [None]
  - Throat tightness [None]
  - Abdominal discomfort [None]

NARRATIVE: CASE EVENT DATE: 20231020
